FAERS Safety Report 25358100 (Version 1)
Quarter: 2025Q2

REPORT INFORMATION
  Report Type: Spontaneous
  Country: US (occurrence: US)
  Receive Date: 20250526
  Receipt Date: 20250526
  Transmission Date: 20250717
  Serious: No
  Sender: IPSEN BIOPHARMACEUTICALS, INC.
  Company Number: US-IPSEN Group, Research and Development-2025-11915

PATIENT
  Age: 13 Year
  Sex: Male
  Weight: 38.55 kg

DRUGS (3)
  1. INCRELEX [Suspect]
     Active Substance: MECASERMIN
     Indication: Primary insulin like growth factor-1 deficiency
     Route: 065
     Dates: start: 20241224, end: 20250516
  2. INCRELEX [Suspect]
     Active Substance: MECASERMIN
     Indication: Short stature
  3. INCRELEX [Suspect]
     Active Substance: MECASERMIN
     Indication: Off label use

REACTIONS (4)
  - Weight increased [Unknown]
  - Headache [Unknown]
  - Body dysmorphic disorder [Unknown]
  - Off label use [Unknown]

NARRATIVE: CASE EVENT DATE: 20241224
